FAERS Safety Report 9115109 (Version 2)
Quarter: 2013Q3

REPORT INFORMATION
  Report Type: Spontaneous
  Country: US (occurrence: US)
  Receive Date: 20130225
  Receipt Date: 20130822
  Transmission Date: 20140515
  Serious: Yes (Other)
  Sender: FDA-Public Use
  Company Number: US-COVIDIEN/TYCO HEALTHCARE/MALLINCKRODT-T201204512

PATIENT
  Age: 44 Year
  Sex: Female

DRUGS (11)
  1. GABLOFEN [Suspect]
     Indication: MUSCLE SPASTICITY
     Dosage: 300 MCG, QD
     Route: 037
     Dates: start: 201102
  2. VALIUM                             /00017001/ [Concomitant]
     Dosage: UNK
  3. XANAX [Concomitant]
     Dosage: UNK
  4. FLEXERIL                           /00428402/ [Concomitant]
     Dosage: UNK
  5. LEXAPRO [Concomitant]
     Dosage: UNK
  6. FLONASE [Concomitant]
     Dosage: UNK
  7. GENTAMYCIN                         /00047101/ [Concomitant]
     Dosage: UNK
  8. WARFARIN [Concomitant]
     Dosage: UNK
  9. BOTOX [Concomitant]
     Indication: MUSCLE SPASMS
     Dosage: UNK
  10. MIDODRINE [Concomitant]
     Dosage: UNK
  11. BACLOFEN [Concomitant]
     Dosage: UNK
     Route: 048

REACTIONS (6)
  - Drug withdrawal syndrome [Recovered/Resolved]
  - Muscle rigidity [Recovered/Resolved]
  - Muscle spasms [Recovered/Resolved]
  - Pruritus [Recovered/Resolved]
  - Agitation [Recovered/Resolved]
  - Device failure [Unknown]
